FAERS Safety Report 10564530 (Version 1)
Quarter: 2014Q4

REPORT INFORMATION
  Report Type: Spontaneous
  Country: US (occurrence: US)
  Receive Date: 20141104
  Receipt Date: 20141104
  Transmission Date: 20150529
  Serious: No
  Sender: FDA-Public Use
  Company Number: US-MALLINCKRODT-T201402386

PATIENT
  Age: 84 Year
  Sex: Female

DRUGS (2)
  1. FENTANYL. [Concomitant]
     Active Substance: FENTANYL
     Dosage: 12 MCG/HR, UNK
     Route: 062
     Dates: start: 201404, end: 201405
  2. FENTANYL TRANSDERMAL SYSTEM [Suspect]
     Active Substance: FENTANYL
     Indication: PAIN
     Dosage: 25 UG/HR, Q72H
     Route: 062
     Dates: start: 20140531

REACTIONS (2)
  - Vulvovaginal pain [Not Recovered/Not Resolved]
  - Coccydynia [Not Recovered/Not Resolved]

NARRATIVE: CASE EVENT DATE: 20140602
